FAERS Safety Report 4468389-5 (Version None)
Quarter: 2004Q4

REPORT INFORMATION
  Report Type: 
  Country: None (occurrence: None)
  Receive Date: 20041007
  Receipt Date: 20040929
  Transmission Date: 20050328
  Serious: Yes (Congenital Anomaly)
  Sender: FDA-Public Use
  Company Number: PL-GLAXOSMITHKLINE-B0347234A

PATIENT
  Sex: Male

DRUGS (7)
  1. LAMOTRIGINE [Suspect]
  2. FOLIC ACID [Concomitant]
     Dosage: 5MG PER DAY
  3. RUTINOSCORBIN [Concomitant]
  4. ACETAMINOPHEN [Concomitant]
  5. HERBAL MEDICATION [Concomitant]
  6. VITAMIN B COMPLEX CAP [Concomitant]
  7. VITAMINS + MINERALS [Concomitant]

REACTIONS (3)
  - CLEFT LIP [None]
  - CONGENITAL ANOMALY [None]
  - DRUG EXPOSURE DURING PREGNANCY [None]
